FAERS Safety Report 6146669-5 (Version None)
Quarter: 2009Q2

REPORT INFORMATION
  Report Type: 
  Country: None (occurrence: None)
  Receive Date: 20090407
  Receipt Date: 20090330
  Transmission Date: 20091009
  Serious: Yes (Other)
  Sender: FDA-Public Use
  Company Number: US-ELI_LILLY_AND_COMPANY-US200903002706

PATIENT
  Sex: Female

DRUGS (4)
  1. HUMALOG [Suspect]
     Indication: DIABETES MELLITUS
     Dosage: UNK, UNK
     Route: 058
     Dates: start: 19990301
  2. ILETIN [Suspect]
     Indication: DIABETES MELLITUS
  3. ILETIN [Suspect]
  4. LANTUS [Concomitant]

REACTIONS (15)
  - CAESAREAN SECTION [None]
  - DRUG EXPOSURE DURING PREGNANCY [None]
  - FEMALE REPRODUCTIVE NEOPLASM [None]
  - FRACTURE [None]
  - GENITAL NEOPLASM MALIGNANT FEMALE [None]
  - HAND FRACTURE [None]
  - LIPODYSTROPHY ACQUIRED [None]
  - NAUSEA [None]
  - NERVOUSNESS [None]
  - PREGNANCY [None]
  - PRURITUS [None]
  - RASH [None]
  - RETINOPATHY [None]
  - TRIGGER FINGER [None]
  - URTICARIA [None]
